FAERS Safety Report 8965679 (Version 1)
Quarter: 2012Q4

REPORT INFORMATION
  Report Type: Spontaneous
  Country: US (occurrence: None)
  Receive Date: 20121212
  Receipt Date: 20121212
  Transmission Date: 20130627
  Serious: No
  Sender: FDA-Public Use
  Company Number: None

PATIENT
  Age: 33 Year
  Sex: Female

DRUGS (9)
  1. AMPYRA [Suspect]
     Route: 048
  2. GABAPENTIN [Concomitant]
  3. ATENOLOL [Concomitant]
  4. ACYCLOVIR [Concomitant]
  5. HYDROCODONE/APAP [Concomitant]
  6. BACLOFEN [Concomitant]
  7. OXYBUTYNIN [Concomitant]
  8. GLATIRAMER [Concomitant]
  9. NORGESTIMATE-ETHINYL ESTRADIOL [Concomitant]

REACTIONS (4)
  - Urinary incontinence [None]
  - Muscle spasms [None]
  - Tremor [None]
  - Muscle spasms [None]
